FAERS Safety Report 9776196 (Version 1)
Quarter: 2013Q4

REPORT INFORMATION
  Report Type: Spontaneous
  Country: CN (occurrence: CN)
  Receive Date: 20131220
  Receipt Date: 20131220
  Transmission Date: 20140711
  Serious: Yes (Death, Other)
  Sender: FDA-Public Use
  Company Number: CN-CELGENEUS-035-21880-13121930

PATIENT
  Age: 46 Year
  Sex: Male

DRUGS (3)
  1. REVLIMID [Suspect]
     Indication: MYELODYSPLASTIC SYNDROME
     Dosage: 25 MILLIGRAM
     Route: 048
     Dates: start: 20130805
  2. REVLIMID [Suspect]
     Indication: ACUTE LEUKAEMIA
  3. REVLIMID [Suspect]
     Indication: OFF LABEL USE

REACTIONS (3)
  - Infection [Not Recovered/Not Resolved]
  - Myelodysplastic syndrome [Fatal]
  - Acute myeloid leukaemia [Fatal]
